FAERS Safety Report 8501131-7 (Version None)
Quarter: 2012Q3

REPORT INFORMATION
  Report Type: 
  Country: None (occurrence: None)
  Receive Date: 20120710
  Receipt Date: 20120703
  Transmission Date: 20120928
  Serious: Yes (Other)
  Sender: FDA-Public Use
  Company Number: PHHY2012BR058540

PATIENT
  Sex: Male

DRUGS (2)
  1. DIOVAN HCT [Suspect]
     Dosage: 15 DF, A DAY (160 MG VALS AND 25 MG HYDRO)
  2. DIOVAN HCT [Suspect]
     Dosage: 160 MG VALS AND 25 MG HYDRO

REACTIONS (2)
  - INCORRECT DOSE ADMINISTERED [None]
  - DIABETES MELLITUS [None]
